FAERS Safety Report 16077941 (Version 2)
Quarter: 2019Q3

REPORT INFORMATION
  Report Type: Spontaneous
  Country: DE (occurrence: DE)
  Receive Date: 20190315
  Receipt Date: 20190816
  Transmission Date: 20191004
  Serious: Yes (Hospitalization, Other)
  Sender: FDA-Public Use
  Company Number: DE-PFIZER INC-2019108848

PATIENT
  Age: 41 Year
  Sex: Female

DRUGS (7)
  1. OPIPRAMOL 1A PHARMA [Suspect]
     Active Substance: OPIPRAMOL
     Dosage: 7.2 MG, 1X/DAY
     Dates: start: 201907
  2. DOMINAL (PROTHIPENDYL HYDROCHLORIDE) [Suspect]
     Active Substance: PROTHIPENDYL HYDROCHLORIDE
     Dosage: 40 MG, QD
     Route: 048
     Dates: start: 201810
  3. LYRICA [Concomitant]
     Active Substance: PREGABALIN
     Dosage: UNK
  4. OPIPRAMOL 1A PHARMA [Suspect]
     Active Substance: OPIPRAMOL
     Dosage: 50 MG, 3X/DAY
     Route: 048
     Dates: start: 201810
  5. TAVOR (LORAZEPAM) [Suspect]
     Active Substance: LORAZEPAM
     Dosage: 1 MG, QD
     Route: 048
     Dates: start: 201810
  6. OPIPRAMOL 1A PHARMA [Suspect]
     Active Substance: OPIPRAMOL
     Dosage: 25 MG, 1X/DAY
     Dates: start: 201903, end: 201904
  7. OPIPRAMOL 1A PHARMA [Suspect]
     Active Substance: OPIPRAMOL
     Dosage: UNK (INCREASING DOSE FOR 4-5 WEEKS)
     Dates: start: 201906, end: 2019

REACTIONS (5)
  - Peripheral swelling [Not Recovered/Not Resolved]
  - Arrhythmia [Unknown]
  - Suicidal ideation [Not Recovered/Not Resolved]
  - Tinnitus [Not Recovered/Not Resolved]
  - Limb discomfort [Not Recovered/Not Resolved]

NARRATIVE: CASE EVENT DATE: 2019
